FAERS Safety Report 5249908-8 (Version None)
Quarter: 2007Q1

REPORT INFORMATION
  Report Type: 
  Country: None (occurrence: None)
  Receive Date: 20070228
  Receipt Date: 20060403
  Transmission Date: 20070707
  Serious: No
  Sender: FDA-Public Use
  Company Number: US-GLAXOSMITHKLINE-A0571250A

PATIENT
  Age: 35 Year
  Sex: Male
  Weight: 90.9 kg

DRUGS (3)
  1. LAMICTAL [Suspect]
     Indication: BIPOLAR DISORDER
     Dosage: 100MG TWICE PER DAY
     Route: 048
     Dates: start: 20050616
  2. ATIVAN [Concomitant]
  3. VICODIN [Concomitant]

REACTIONS (1)
  - PRIAPISM [None]
